FAERS Safety Report 5383093-7 (Version None)
Quarter: 2007Q3

REPORT INFORMATION
  Report Type: 
  Country: None (occurrence: None)
  Receive Date: 20070710
  Receipt Date: 20070629
  Transmission Date: 20080115
  Serious: Yes (Hospitalization)
  Sender: FDA-Public Use
  Company Number: JP-MERCK-0706USA04496

PATIENT
  Age: 30 Year
  Sex: Female
  Weight: 46 kg

DRUGS (4)
  1. HYDROCORTONE [Suspect]
     Route: 042
  2. EPINEPHRINE [Concomitant]
     Route: 042
  3. ALBUMIN HUMAN [Concomitant]
     Route: 042
  4. [THERAPY UNSPECIFIED] [Concomitant]
     Route: 065

REACTIONS (1)
  - HYPOXIA [None]
